FAERS Safety Report 19098861 (Version 1)
Quarter: 2021Q2

REPORT INFORMATION
  Report Type: Report from Study
  Country: US (occurrence: US)
  Receive Date: 20210406
  Receipt Date: 20210406
  Transmission Date: 20210717
  Serious: Yes (Other)
  Sender: FDA-Public Use
  Company Number: US-MYLANLABS-2021M1020457

PATIENT
  Sex: Female

DRUGS (3)
  1. ENFORTUMAB VEDOTIN [Suspect]
     Active Substance: ENFORTUMAB VEDOTIN
     Dosage: UNK (CYCLIC UNKNOWN HALF DOSE TO MAINTAIN STABILITY)
     Route: 065
     Dates: end: 202003
  2. CISPLATIN. [Suspect]
     Active Substance: CISPLATIN
     Indication: PRODUCT USED FOR UNKNOWN INDICATION
     Dosage: UNK
     Route: 065
     Dates: start: 201903
  3. ENFORTUMAB VEDOTIN [Suspect]
     Active Substance: ENFORTUMAB VEDOTIN
     Indication: BLADDER CANCER
     Dosage: UNK, CYCLE (CYCLE OF INFUSION OF DAYS 1, 8 ; BREAK ON DAY 15)
     Route: 065
     Dates: start: 201903

REACTIONS (6)
  - Dry skin [Unknown]
  - Taste disorder [Unknown]
  - Dry eye [Unknown]
  - Fatigue [Unknown]
  - Neuropathy peripheral [Not Recovered/Not Resolved]
  - Rash [Recovered/Resolved]
